FAERS Safety Report 22110283 (Version 1)
Quarter: 2023Q1

REPORT INFORMATION
  Report Type: Spontaneous
  Country: KR (occurrence: None)
  Receive Date: 20230317
  Receipt Date: 20230317
  Transmission Date: 20230418
  Serious: Yes (Death)
  Sender: FDA-Public Use
  Company Number: 2023A061860

PATIENT
  Age: 58 Year
  Sex: Male

DRUGS (2)
  1. TAGRISSO [Suspect]
     Active Substance: OSIMERTINIB
     Dosage: 30 TABLETS
     Route: 048
     Dates: start: 20221207
  2. TAGRISSO [Suspect]
     Active Substance: OSIMERTINIB
     Dosage: 14 TABLETS
     Route: 048
     Dates: start: 20221221

REACTIONS (1)
  - Non-small cell lung cancer [Fatal]

NARRATIVE: CASE EVENT DATE: 20230123
